FAERS Safety Report 8898792 (Version 1)
Quarter: 2012Q4

REPORT INFORMATION
  Report Type: 
  Country: US (occurrence: US)
  Receive Date: 20121108
  Receipt Date: 20121108
  Transmission Date: 20130627
  Serious: No
  Sender: FDA-Public Use
  Company Number: US-AMGEN-USASP2012036986

PATIENT
  Age: 64 Year
  Sex: Female
  Weight: 81 kg

DRUGS (16)
  1. ENBREL [Suspect]
     Indication: PRODUCT USED FOR UNKNOWN INDICATION
     Dosage: 50 mg, qwk
     Route: 058
  2. MELOXICAM [Concomitant]
     Dosage: 7.5 mg, UNK
  3. CLONAZEPAM [Concomitant]
     Dosage: 1 mg, UNK
  4. CYMBALTA [Concomitant]
     Dosage: 20 mg, UNK
  5. PRAVASTATIN [Concomitant]
     Dosage: 10 mg, UNK
  6. PROZAC [Concomitant]
     Dosage: 10 mg, UNK
  7. ASA [Concomitant]
     Dosage: 81 mg, UNK
  8. CENTRUM                            /00554501/ [Concomitant]
  9. VITAMIN D /00107901/ [Concomitant]
     Dosage: 400 unit
  10. CITRACAL                           /00751520/ [Concomitant]
  11. FLAXSEED OIL [Concomitant]
     Dosage: 1000 mg, UNK
  12. PREDNISONE [Concomitant]
     Dosage: 1 mg, UNK
  13. LOSARTAN HCT [Concomitant]
     Dosage: 100-12.5
  14. VITAMIN B12                        /00056201/ [Concomitant]
     Dosage: 1000 CR
  15. GABAPENTIN [Concomitant]
     Dosage: 100 mg, UNK
  16. CARVEDILOL [Concomitant]
     Dosage: 25 mg, UNK

REACTIONS (6)
  - Injection site reaction [Unknown]
  - Injection site erythema [Unknown]
  - Injection site bruising [Unknown]
  - Injection site pain [Unknown]
  - Pain [Unknown]
  - Feeling abnormal [Not Recovered/Not Resolved]
